FAERS Safety Report 18558824 (Version 2)
Quarter: 2020Q4

REPORT INFORMATION
  Report Type: Other
  Country: JP (occurrence: JP)
  Receive Date: 20201130
  Receipt Date: 20201216
  Transmission Date: 20210114
  Serious: Yes (Hospitalization)
  Sender: FDA-Public Use
  Company Number: JP-ROCHE-2721466

PATIENT
  Age: 9 Year
  Sex: Male
  Weight: 74 kg

DRUGS (9)
  1. EMICIZUMAB. [Suspect]
     Active Substance: EMICIZUMAB
     Route: 058
     Dates: start: 20201112
  2. TRANSAMIN [Concomitant]
     Active Substance: TRANEXAMIC ACID
     Route: 048
     Dates: start: 20181025, end: 20181031
  3. XYZAL [Concomitant]
     Active Substance: LEVOCETIRIZINE DIHYDROCHLORIDE
     Dosage: DOSAGE IS UNCERTAIN.
     Route: 065
     Dates: start: 20190314
  4. EMICIZUMAB. [Suspect]
     Active Substance: EMICIZUMAB
     Indication: HAEMOPHILIA A WITH ANTI FACTOR VIII
     Route: 058
     Dates: start: 20180614
  5. EMICIZUMAB. [Suspect]
     Active Substance: EMICIZUMAB
     Route: 058
     Dates: start: 20180712
  6. EPTACOG ALFA [Concomitant]
     Active Substance: COAGULATION FACTOR VIIA RECOMBINANT HUMAN
     Dosage: DOSE INTERVAL UNCERTAINTY
     Route: 065
     Dates: start: 20181213
  7. EPTACOG ALFA [Concomitant]
     Active Substance: COAGULATION FACTOR VIIA RECOMBINANT HUMAN
     Dosage: DOSE INTERVAL UNCERTAINTY
     Route: 065
     Dates: start: 20181021
  8. EPTACOG ALFA [Concomitant]
     Active Substance: COAGULATION FACTOR VIIA RECOMBINANT HUMAN
     Dosage: DOSE INTERVAL UNCERTAINTY
     Route: 065
     Dates: start: 20181108
  9. EMICIZUMAB. [Suspect]
     Active Substance: EMICIZUMAB
     Route: 058
     Dates: start: 20181128

REACTIONS (3)
  - Rhinitis allergic [Unknown]
  - Hepatic steatosis [Unknown]
  - Renal haemorrhage [Recovering/Resolving]

NARRATIVE: CASE EVENT DATE: 20181011
